FAERS Safety Report 8053038-X (Version None)
Quarter: 2012Q1

REPORT INFORMATION
  Report Type: 
  Country: None (occurrence: None)
  Receive Date: 20120118
  Receipt Date: 20120111
  Transmission Date: 20120608
  Serious: Yes (Life-Threatening, Hospitalization, Disabling)
  Sender: FDA-Public Use
  Company Number: JP-NOVOPROD-341927

PATIENT
  Age: 41 Year
  Sex: Male
  Weight: 76 kg

DRUGS (4)
  1. NOVORAPID CHU FLEXPEN [Suspect]
     Dosage: 900 U, QD
     Route: 058
     Dates: start: 20090606
  2. LEVEMIR [Concomitant]
     Indication: TYPE 2 DIABETES MELLITUS
     Dosage: 40 U, QD
     Route: 058
     Dates: start: 20070101, end: 20090510
  3. LEVEMIR [Concomitant]
     Dosage: 28 U, QD
     Route: 058
     Dates: start: 20090523, end: 20090616
  4. NOVORAPID CHU FLEXPEN [Suspect]
     Indication: TYPE 2 DIABETES MELLITUS
     Dosage: 600 U, QD
     Route: 058
     Dates: start: 20090510

REACTIONS (3)
  - SUICIDE ATTEMPT [None]
  - INTENTIONAL OVERDOSE [None]
  - HYPOGLYCAEMIC ENCEPHALOPATHY [None]
